FAERS Safety Report 26216370 (Version 1)
Quarter: 2025Q4

REPORT INFORMATION
  Report Type: Spontaneous
  Country: EU (occurrence: EU)
  Receive Date: 20251231
  Receipt Date: 20251231
  Transmission Date: 20260117
  Serious: Yes (Life-Threatening, Other)
  Sender: AUROBINDO
  Company Number: EU-URPL-DML-MLP.4401.1.2579.2022

PATIENT
  Age: 21 Year
  Sex: Female
  Weight: 80 kg

DRUGS (2)
  1. ACETAMINOPHEN [Suspect]
     Active Substance: ACETAMINOPHEN
     Indication: Product used for unknown indication
     Dosage: 25 G
     Route: 061
  2. PHENYTOIN [Suspect]
     Active Substance: PHENYTOIN
     Indication: Product used for unknown indication
     Dosage: 1250 MG
     Route: 061

REACTIONS (4)
  - Suicide attempt [Recovering/Resolving]
  - Toxicity to various agents [Recovering/Resolving]
  - Loss of consciousness [Recovering/Resolving]
  - Unresponsive to stimuli [Recovering/Resolving]

NARRATIVE: CASE EVENT DATE: 20220826
